FAERS Safety Report 4579195-5 (Version None)
Quarter: 2005Q1

REPORT INFORMATION
  Report Type: 
  Country: None (occurrence: None)
  Receive Date: 20050208
  Receipt Date: 20050208
  Transmission Date: 20050727
  Serious: Yes (Congenital Anomaly)
  Sender: FDA-Public Use
  Company Number: None

PATIENT
  Sex: Male
  Weight: 79.3795 kg

DRUGS (1)
  1. NEFAZODONE 150 [Suspect]
     Dosage: 2 3 X DAY
     Dates: start: 19890101, end: 20050204

REACTIONS (1)
  - HYPERTENSION [None]
